FAERS Safety Report 6037241-6 (Version None)
Quarter: 2009Q1

REPORT INFORMATION
  Report Type: 
  Country: None (occurrence: None)
  Receive Date: 20090114
  Receipt Date: 20090109
  Transmission Date: 20090719
  Serious: Yes (Hospitalization)
  Sender: FDA-Public Use
  Company Number: A0696643A

PATIENT
  Age: 53 Year
  Sex: Male
  Weight: 95.5 kg

DRUGS (9)
  1. AVANDIA [Suspect]
     Dosage: 2MG TWICE PER DAY
     Route: 048
     Dates: start: 20050405, end: 20070501
  2. AVANDAMET [Suspect]
     Route: 048
     Dates: start: 20050207, end: 20050405
  3. METFORMIN HCL [Concomitant]
     Dates: start: 20041101
  4. COREG [Concomitant]
     Dates: start: 20041101
  5. LIPITOR [Concomitant]
     Dates: start: 20030301, end: 20070701
  6. CYMBALTA [Concomitant]
  7. LEVOTHYROXINE SODIUM [Concomitant]
  8. PROTONIX [Concomitant]
  9. ZETIA [Concomitant]

REACTIONS (2)
  - CARDIAC DISORDER [None]
  - MYOCARDIAL INFARCTION [None]
